FAERS Safety Report 7220707-0 (Version None)
Quarter: 2011Q1

REPORT INFORMATION
  Report Type: 
  Country: None (occurrence: None)
  Receive Date: 20110111
  Receipt Date: 20110107
  Transmission Date: 20110831
  Serious: Yes (Hospitalization)
  Sender: FDA-Public Use
  Company Number: US-GILEAD-2010-0034632

PATIENT
  Sex: Female
  Weight: 78.542 kg

DRUGS (15)
  1. NORVIR [Concomitant]
     Indication: HIV INFECTION
     Dates: start: 20061106
  2. ZINC [Concomitant]
  3. QUANTUM [Concomitant]
  4. IMMUNE GLOBULIN INTRAVENOUS (HUMAN) [Concomitant]
  5. SELZENTRY [Concomitant]
  6. TRUVADA [Suspect]
     Indication: HIV INFECTION
     Route: 048
     Dates: start: 20061106, end: 20101115
  7. REYATAZ [Concomitant]
     Indication: HIV INFECTION
     Route: 048
     Dates: start: 20061106
  8. ALPHA LIPOIC [Suspect]
  9. COENZYME Q10 [Concomitant]
  10. SELENIUM [Concomitant]
  11. ANTIOXIDANT [Concomitant]
  12. ZOLOFT [Concomitant]
     Dates: start: 20100510
  13. FOLIC ACID [Concomitant]
  14. CALCIUM [Concomitant]
  15. MAGNESIUM [Concomitant]

REACTIONS (6)
  - CHOLELITHIASIS [None]
  - NEPHROLITHIASIS [None]
  - ACCIDENT [None]
  - RENAL IMPAIRMENT [None]
  - URINARY TRACT INFECTION BACTERIAL [None]
  - LIGAMENT RUPTURE [None]
